FAERS Safety Report 12859925 (Version 2)
Quarter: 2016Q4

REPORT INFORMATION
  Report Type: Report from Study
  Country: KR (occurrence: KR)
  Receive Date: 20161018
  Receipt Date: 20161101
  Transmission Date: 20170207
  Serious: Yes (Hospitalization)
  Sender: FDA-Public Use
  Company Number: KR-B.I. PHARMACEUTICALS,INC./RIDGEFIELD-2016-BI-065290

PATIENT
  Age: 66 Year
  Sex: Male
  Weight: 81 kg

DRUGS (2)
  1. JENTADUETO [Suspect]
     Active Substance: LINAGLIPTIN\METFORMIN HYDROCHLORIDE
     Indication: TYPE 2 DIABETES MELLITUS
     Dosage: UNIT DOSE AND DAILY  DOSE: 2.5/500MG
     Route: 048
     Dates: start: 20150730
  2. KANARB [Concomitant]
     Indication: HYPERTENSION
     Route: 048
     Dates: start: 20140409

REACTIONS (1)
  - Ligament sprain [Recovered/Resolved]

NARRATIVE: CASE EVENT DATE: 20150801
